FAERS Safety Report 9606049 (Version 1)
Quarter: 2013Q4

REPORT INFORMATION
  Report Type: Spontaneous
  Country: US (occurrence: US)
  Receive Date: 20131008
  Receipt Date: 20131008
  Transmission Date: 20140711
  Serious: No
  Sender: FDA-Public Use
  Company Number: US-AMGEN-USASP2013039855

PATIENT
  Age: 75 Year
  Sex: Female

DRUGS (5)
  1. PROLIA [Suspect]
     Indication: OSTEOPOROSIS POSTMENOPAUSAL
     Dosage: UNK
     Dates: start: 2011
  2. SYNTHROID [Concomitant]
  3. MULTIVITAMIN                       /00097801/ [Concomitant]
  4. BABY ASPIRIN [Concomitant]
  5. CALCIUM WITH VITAMIN D             /00944201/ [Concomitant]
     Dosage: 600 MG, QD

REACTIONS (2)
  - Gingival pain [Unknown]
  - Sensitivity of teeth [Unknown]
